FAERS Safety Report 14253566 (Version 3)
Quarter: 2018Q2

REPORT INFORMATION
  Report Type: Report from Study
  Country: US (occurrence: US)
  Receive Date: 20171206
  Receipt Date: 20180504
  Transmission Date: 20180711
  Serious: Yes (Other)
  Sender: FDA-Public Use
  Company Number: PHEH2017US039085

PATIENT
  Sex: Male

DRUGS (1)
  1. ENTRESTO [Suspect]
     Active Substance: SACUBITRIL\VALSARTAN
     Indication: PRODUCT USED FOR UNKNOWN INDICATION
     Route: 048

REACTIONS (14)
  - Dyspnoea [Unknown]
  - Chest pain [Unknown]
  - Dyschezia [Unknown]
  - Nasopharyngitis [Unknown]
  - Asthenia [Unknown]
  - Abdominal discomfort [Unknown]
  - Abnormal faeces [Unknown]
  - Cough [Unknown]
  - Myocardial infarction [Unknown]
  - Gastric disorder [Unknown]
  - Hypotension [Unknown]
  - Fatigue [Unknown]
  - Dizziness [Unknown]
  - Diarrhoea [Unknown]
